FAERS Safety Report 9674873 (Version 4)
Quarter: 2014Q1

REPORT INFORMATION
  Report Type: Report from Study
  Country: AR (occurrence: AR)
  Receive Date: 20131107
  Receipt Date: 20140228
  Transmission Date: 20141002
  Serious: Yes (Death, Hospitalization)
  Sender: FDA-Public Use
  Company Number: PHHY2011AR71566

PATIENT
  Age: 80 Year
  Sex: Male

DRUGS (1)
  1. GLIVEC [Suspect]
     Indication: CHRONIC MYELOID LEUKAEMIA
     Dosage: 400 MG, DAILY
     Route: 048
     Dates: start: 200909

REACTIONS (5)
  - Liver disorder [Fatal]
  - Gastrointestinal disorder [Recovering/Resolving]
  - Nosocomial infection [Unknown]
  - Lung infection [Unknown]
  - Anaemia [Not Recovered/Not Resolved]
